FAERS Safety Report 10333146 (Version 1)
Quarter: 2014Q3

REPORT INFORMATION
  Report Type: Spontaneous
  Country: US (occurrence: US)
  Receive Date: 20140722
  Receipt Date: 20140722
  Transmission Date: 20150326
  Serious: Yes (Death)
  Sender: FDA-Public Use
  Company Number: US-SA-2014SA029848

PATIENT
  Age: 22 Year
  Sex: Male

DRUGS (1)
  1. AMBIEN CR [Suspect]
     Active Substance: ZOLPIDEM TARTRATE
     Route: 048
     Dates: start: 2009

REACTIONS (1)
  - Abnormal behaviour [Fatal]

NARRATIVE: CASE EVENT DATE: 20130318
